FAERS Safety Report 24426504 (Version 1)
Quarter: 2024Q4

REPORT INFORMATION
  Report Type: Spontaneous
  Country: SA (occurrence: SA)
  Receive Date: 20241011
  Receipt Date: 20241011
  Transmission Date: 20250114
  Serious: Yes (Death, Other)
  Sender: RANBAXY
  Company Number: SA-SUN PHARMACEUTICAL INDUSTRIES LTD-2024R1-472927

PATIENT
  Age: 79 Year
  Sex: Male

DRUGS (1)
  1. PREDNISONE [Suspect]
     Active Substance: PREDNISONE
     Indication: Linear IgA disease
     Dosage: 25 MILLIGRAM, DAILY
     Route: 065

REACTIONS (2)
  - Condition aggravated [Fatal]
  - Cardio-respiratory arrest [Fatal]
